FAERS Safety Report 9522457 (Version 1)
Quarter: 2013Q1

REPORT INFORMATION
  Report Type: Spontaneous
  Country: US (occurrence: None)
  Receive Date: 20130305
  Receipt Date: 20130305
  Transmission Date: 20140127
  Serious: Yes (Hospitalization)
  Sender: FDA-Public Use
  Company Number: 163-21880-12070698

PATIENT
  Age: 75 Year
  Sex: Female

DRUGS (12)
  1. REVLIMID (LENALIDOMIDE) (15 MILLIGRAM, CAPSULES) [Suspect]
     Indication: PLASMA CELL MYELOMA
     Dosage: 15 MG, 21 IN 28 D, PO
     Route: 048
     Dates: start: 200807, end: 201205
  2. DEXAMETHASONE (DEXAMETHASONE) [Concomitant]
  3. EPOETIN ALFA [Concomitant]
  4. METOPROLOL (METOPROLOL) [Concomitant]
  5. SIMVASTATIN (SIMVASTATIN) [Concomitant]
  6. POTASSIUM (POTASSIUM) [Concomitant]
  7. CINACALCET (CINACALCET) [Concomitant]
  8. NORTRIPTYLINE (NORTRIPTYLINE) [Concomitant]
  9. OXYBUTYNIN (OXYBUTYNIN) [Concomitant]
  10. MOMETASONE / FORMOTEROL (FORMOTEROL W/ MOMETASONE) [Concomitant]
  11. ALBUTEROL (SALBUTAMOL) [Concomitant]
  12. FLUTICASONE (FLUTICASONE) [Concomitant]

REACTIONS (1)
  - Pneumonia [None]
